FAERS Safety Report 21713429 (Version 9)
Quarter: 2025Q2

REPORT INFORMATION
  Report Type: Spontaneous
  Country: US (occurrence: US)
  Receive Date: 20221212
  Receipt Date: 20250626
  Transmission Date: 20250717
  Serious: Yes (Other)
  Sender: PFIZER
  Company Number: US-PFIZER INC-PV202200120239

PATIENT
  Age: 78 Year
  Sex: Female

DRUGS (6)
  1. XELJANZ XR [Suspect]
     Active Substance: TOFACITINIB CITRATE
     Indication: Rheumatoid arthritis
  2. CALCIUM [Concomitant]
     Active Substance: CALCIUM
  3. NITROFURANTOIN [Concomitant]
     Active Substance: NITROFURANTOIN
  4. TIZANIDINE [Concomitant]
     Active Substance: TIZANIDINE
  5. PREDNISONE [Concomitant]
     Active Substance: PREDNISONE
  6. PROLIA [Concomitant]
     Active Substance: DENOSUMAB

REACTIONS (11)
  - Suicidal ideation [Unknown]
  - Skin cancer [Unknown]
  - Malaise [Unknown]
  - Stress [Unknown]
  - Urinary tract infection [Unknown]
  - Infection [Unknown]
  - Vomiting [Unknown]
  - Muscle spasms [Unknown]
  - Balance disorder [Unknown]
  - Illness [Unknown]
  - Blood pressure increased [Unknown]
